FAERS Safety Report 13642439 (Version 1)
Quarter: 2017Q2

REPORT INFORMATION
  Report Type: Spontaneous
  Country: US (occurrence: US)
  Receive Date: 20170612
  Receipt Date: 20170612
  Transmission Date: 20170830
  Serious: No
  Sender: FDA-Public Use
  Company Number: US-SEPTODONT-201603484

PATIENT
  Age: 45 Year
  Sex: Male

DRUGS (5)
  1. SEPTOCAINE AND EPINEPHRINE [Suspect]
     Active Substance: ARTICAINE HYDROCHLORIDE\EPINEPHRINE BITARTRATE
     Indication: LOCAL ANAESTHESIA
     Dosage: INFILTRATION IN PALATAL HEALTHY TISSUE WITH 1/2^ 30G NEEDLE. 0.25 CARPULE FROM DRUG #1, 2, 3 OR 4
     Route: 004
     Dates: start: 20160610, end: 20160610
  2. SEPTOCAINE AND EPINEPHRINE [Suspect]
     Active Substance: ARTICAINE HYDROCHLORIDE\EPINEPHRINE BITARTRATE
     Indication: LOCAL ANAESTHESIA
     Dosage: INFILTRATION IN PALATAL HEALTHY TISSUE WITH 1/2^ 30G NEEDLE. 0.25 CARPULE FROM DRUG #1, 2, 3 OR 4
     Route: 004
     Dates: start: 20160610, end: 20160610
  3. SEPTOCAINE AND EPINEPHRINE [Suspect]
     Active Substance: ARTICAINE HYDROCHLORIDE\EPINEPHRINE BITARTRATE
     Indication: LOCAL ANAESTHESIA
     Dosage: INFILTRATION IN PALATAL HEALTHY TISSUE WITH 1/2^ 30G NEEDLE. 0.25 CARPULE FROM DRUG #1, 2, 3 OR 4
     Route: 004
     Dates: start: 20160610, end: 20160610
  4. BENZOCAINE. [Concomitant]
     Active Substance: BENZOCAINE
     Dosage: UNKNOWN DOSE
     Dates: start: 20160610, end: 20160610
  5. SEPTOCAINE AND EPINEPHRINE [Suspect]
     Active Substance: ARTICAINE HYDROCHLORIDE\EPINEPHRINE BITARTRATE
     Indication: LOCAL ANAESTHESIA
     Dosage: INFILTRATION IN PALATAL HEALTHY TISSUE WITH 1/2^ 30G NEEDLE. 0.25 CARPULE FROM DRUG #1, 2, 3 OR 4
     Route: 004
     Dates: start: 20160610, end: 20160610

REACTIONS (3)
  - Pain [Unknown]
  - Discomfort [Unknown]
  - Mouth ulceration [Unknown]

NARRATIVE: CASE EVENT DATE: 20160610
